FAERS Safety Report 7640787-8 (Version None)
Quarter: 2011Q3

REPORT INFORMATION
  Report Type: 
  Country: None (occurrence: None)
  Receive Date: 20110728
  Receipt Date: 20110719
  Transmission Date: 20111222
  Serious: Yes (Life-Threatening, Hospitalization, Other)
  Sender: FDA-Public Use
  Company Number: DE-TEVA-291122GER

PATIENT
  Age: 45 Year
  Sex: Female
  Weight: 61 kg

DRUGS (5)
  1. RHEUMASALBE AUS DROGERIEN, NN [Concomitant]
     Dosage: 1X WEEKLY
     Route: 003
     Dates: start: 20110201
  2. IBUPROFEN [Suspect]
     Dosage: 1200 MILLIGRAM;
     Route: 048
     Dates: start: 20100101, end: 20110421
  3. METHOTREXATE [Suspect]
     Dosage: 10 MILLIGRAM; 1X 10 MG I.M. ON 12 APR 2011
     Route: 030
     Dates: start: 20110412, end: 20110412
  4. METHOTREXATE [Suspect]
     Indication: RHEUMATOID ARTHRITIS
     Dosage: 1X1 TABLET AT 10 MG WEEKLY PER OS
     Route: 048
     Dates: start: 20110215, end: 20110406
  5. IBUPROFEN [Suspect]
     Dosage: 800 MILLIGRAM;
     Route: 048
     Dates: start: 20091201, end: 20100101

REACTIONS (1)
  - RENAL FAILURE ACUTE [None]
